FAERS Safety Report 9985544 (Version 2)
Quarter: 2014Q3

REPORT INFORMATION
  Report Type: Spontaneous
  Country: US (occurrence: US)
  Receive Date: 20140307
  Receipt Date: 20140821
  Transmission Date: 20150326
  Serious: Yes (Hospitalization)
  Sender: FDA-Public Use
  Company Number: US-BAYER-2014-035505

PATIENT
  Age: 30 Year
  Sex: Female
  Weight: 81.63 kg

DRUGS (17)
  1. TOPROL XL [Concomitant]
     Active Substance: METOPROLOL SUCCINATE
     Dosage: UNK
     Dates: start: 2000, end: 2012
  2. METHYLPREDNISOLONE [Concomitant]
     Active Substance: METHYLPREDNISOLONE
     Dosage: 4 MG,DOSEPACK
     Dates: start: 20070420
  3. PROPRANOLOL [Concomitant]
     Active Substance: PROPRANOLOL\PROPRANOLOL HYDROCHLORIDE
     Dosage: 20 MG THREE TIMES DAILY
  4. SPIRONOLACTONE. [Concomitant]
     Active Substance: SPIRONOLACTONE
     Dosage: 50 MG, DAILY
     Dates: start: 2000, end: 2012
  5. OMNICEF [Concomitant]
     Active Substance: CEFDINIR
     Dosage: 300 MG CAP-2 CAPS DAILY
     Route: 048
     Dates: start: 20070209
  6. ASTELIN [Concomitant]
     Active Substance: AZELASTINE HYDROCHLORIDE
     Indication: MULTIPLE ALLERGIES
     Dosage: UNK
     Dates: start: 2001
  7. ESTROGEN NOS [Concomitant]
     Active Substance: ESTROGENS
  8. ESTRADIOL. [Concomitant]
     Active Substance: ESTRADIOL
     Dosage: 1 MG IN THE MORNING
  9. PATANOL [Concomitant]
     Active Substance: OLOPATADINE HYDROCHLORIDE
     Dosage: 1-2 DROPS OU Q8H PRN1-2 DROPS OU Q8H PRN
     Dates: start: 20070209
  10. TOPROL XL [Concomitant]
     Active Substance: METOPROLOL SUCCINATE
     Indication: ESSENTIAL TREMOR
     Dosage: UNK
     Dates: start: 2001, end: 2012
  11. WELLBID-D [Concomitant]
     Indication: NASAL CONGESTION
     Dosage: UNK
     Dates: start: 2005, end: 2008
  12. SYNTHROID [Concomitant]
     Active Substance: LEVOTHYROXINE SODIUM
     Dosage: 25 MG, ID
     Dates: start: 2000, end: 2012
  13. RHINOCORT [Concomitant]
     Active Substance: BUDESONIDE
     Indication: NASAL CONGESTION
     Dosage: UNK
     Dates: start: 2001, end: 2012
  14. ADVAIR HFA [Concomitant]
     Active Substance: FLUTICASONE PROPIONATE\SALMETEROL XINAFOATE
     Indication: ASTHMA
     Dosage: UNK
     Dates: start: 2001
  15. YASMIN [Suspect]
     Active Substance: DROSPIRENONE\ETHINYL ESTRADIOL
     Dosage: UNK
     Dates: start: 2006, end: 2007
  16. ANTIBIOTICS [Concomitant]
     Active Substance: UNSPECIFIED INGREDIENT
     Dosage: PM
  17. WELLBID-D [Concomitant]
     Indication: NASAL CONGESTION
     Dosage: 1 DAILY

REACTIONS (10)
  - Pain [None]
  - Mental disorder [None]
  - Injury [Recovered/Resolved]
  - Deep vein thrombosis [Recovered/Resolved]
  - Emotional distress [None]
  - Anxiety [None]
  - Abdominal pain [None]
  - Pain in extremity [Recovered/Resolved]
  - General physical health deterioration [Recovered/Resolved]
  - Peripheral swelling [Recovered/Resolved]

NARRATIVE: CASE EVENT DATE: 200705
